FAERS Safety Report 4682738-4 (Version None)
Quarter: 2005Q2

REPORT INFORMATION
  Report Type: 
  Country: None (occurrence: None)
  Receive Date: 20050602
  Receipt Date: 20050418
  Transmission Date: 20051028
  Serious: No
  Sender: FDA-Public Use
  Company Number: USA050495825

PATIENT
  Age: 52 Year
  Sex: Female
  Weight: 102 kg

DRUGS (5)
  1. CYMBALTA [Suspect]
     Indication: FIBROMYALGIA
     Dosage: 60 MG DAY
     Dates: start: 20050408
  2. GLUCOPHAGE [Concomitant]
  3. GUAIFENESIN (GUAIFENESIN L.A.) [Concomitant]
  4. SYNTHROID [Concomitant]
  5. L-5HPT (OXITRIPTAN) [Concomitant]

REACTIONS (1)
  - ADVERSE DRUG REACTION [None]
